FAERS Safety Report 16753649 (Version 2)
Quarter: 2019Q3

REPORT INFORMATION
  Report Type: Spontaneous
  Country: US (occurrence: US)
  Receive Date: 20190829
  Receipt Date: 20190911
  Transmission Date: 20191005
  Serious: No
  Sender: FDA-Public Use
  Company Number: US-009507513-1908USA008938

PATIENT
  Age: 21 Year
  Sex: Female
  Weight: 68.48 kg

DRUGS (3)
  1. NEXPLANON [Suspect]
     Active Substance: ETONOGESTREL
     Dosage: UNK
  2. NEXPLANON [Suspect]
     Active Substance: ETONOGESTREL
     Dosage: ROD
     Route: 059
     Dates: start: 20190819, end: 20190819
  3. NEXPLANON [Suspect]
     Active Substance: ETONOGESTREL
     Dosage: ROD
     Route: 059
     Dates: start: 20190819

REACTIONS (2)
  - Complication of device insertion [Recovered/Resolved]
  - Product quality issue [Unknown]

NARRATIVE: CASE EVENT DATE: 20190819
